FAERS Safety Report 5332494-1 (Version None)
Quarter: 2007Q2

REPORT INFORMATION
  Report Type: 
  Country: None (occurrence: None)
  Receive Date: 20070523
  Receipt Date: 20070510
  Transmission Date: 20071010
  Serious: Yes (Hospitalization)
  Sender: FDA-Public Use
  Company Number: FR-GILEAD-2007-0010983

PATIENT
  Age: 64 Year
  Sex: Male
  Weight: 81 kg

DRUGS (5)
  1. TRUVADA [Suspect]
     Indication: HIV INFECTION
     Route: 048
     Dates: start: 20040606, end: 20060601
  2. KALETRA [Suspect]
     Indication: HIV INFECTION
     Dates: start: 20040606
  3. INVIRASE [Concomitant]
     Indication: HIV INFECTION
     Route: 048
     Dates: start: 20060811
  4. BACTRIM [Concomitant]
     Route: 048
     Dates: start: 20060615
  5. TRIFLUCAN [Concomitant]
     Route: 048
     Dates: start: 20060615, end: 20060715

REACTIONS (5)
  - ASTHENIA [None]
  - BONE PAIN [None]
  - FANCONI SYNDROME ACQUIRED [None]
  - OSTEOPOROSIS [None]
  - RENAL FAILURE ACUTE [None]
